FAERS Safety Report 15451777 (Version 1)
Quarter: 2018Q4

REPORT INFORMATION
  Report Type: Spontaneous
  Country: DE (occurrence: DE)
  Receive Date: 20181001
  Receipt Date: 20181001
  Transmission Date: 20190204
  Serious: Yes (Hospitalization)
  Sender: FDA-Public Use
  Company Number: DE-SAKK-2018SA261112AA

PATIENT
  Age: 61 Year
  Sex: Female

DRUGS (1)
  1. SARILUMAB [Suspect]
     Active Substance: SARILUMAB
     Indication: RHEUMATOID ARTHRITIS
     Dosage: DAILY DOSE: 200 MG MILLGRAM(S) EVERY 14 DAYS
     Route: 058
     Dates: start: 201801, end: 201808

REACTIONS (1)
  - Diverticulum intestinal [Recovered/Resolved]
